FAERS Safety Report 4312254-0 (Version None)
Quarter: 2004Q1

REPORT INFORMATION
  Report Type: 
  Country: None (occurrence: None)
  Receive Date: 20040303
  Receipt Date: 19971014
  Transmission Date: 20041129
  Serious: Yes (Death)
  Sender: FDA-Public Use
  Company Number: US-JNJFOC-20031202536

PATIENT
  Age: 51 Year
  Sex: Male
  Weight: 70.3075 kg

DRUGS (8)
  1. INFLIXIMAB (INFLIXIMAB, RECOMBINANT) LYOPHILIZED POWDER [Suspect]
     Indication: CROHN'S DISEASE
     Dosage: 1 MG/KG, INTRAVENOUS
     Route: 042
     Dates: start: 19941025
  2. CORTIFOAM (HYDROCORTISONE ACETATE) [Concomitant]
  3. ASACOL [Concomitant]
  4. ZANTAC [Concomitant]
  5. MERCAPTOPURINE [Concomitant]
  6. TETRACYCLINE [Concomitant]
  7. PEPTOBISMOL (BISMUTH SUBSALICYLATE) [Concomitant]
  8. PREDNISONE [Concomitant]

REACTIONS (3)
  - CYTOMEGALOVIRUS INFECTION [None]
  - IMMUNOSUPPRESSION [None]
  - PNEUMOCYSTIS CARINII PNEUMONIA [None]
